FAERS Safety Report 5929471-6 (Version None)
Quarter: 2008Q3

REPORT INFORMATION
  Report Type: 
  Country: None (occurrence: None)
  Receive Date: 20080924
  Receipt Date: 20080813
  Transmission Date: 20090109
  Serious: Yes (Other)
  Sender: FDA-Public Use
  Company Number: A03200706256

PATIENT
  Sex: Female

DRUGS (1)
  1. AMBIEN CR [Suspect]
     Dosage: 10 TO 15 PILLS PER NIGHT - ORAL
     Route: 048

REACTIONS (4)
  - BACK PAIN [None]
  - DRUG ABUSE [None]
  - DRUG DEPENDENCE [None]
  - PAIN IN EXTREMITY [None]
